FAERS Safety Report 6235759-4 (Version None)
Quarter: 2009Q2

REPORT INFORMATION
  Report Type: 
  Country: None (occurrence: None)
  Receive Date: 20090619
  Receipt Date: 20080304
  Transmission Date: 20091009
  Serious: Yes (Other)
  Sender: FDA-Public Use
  Company Number: US-ASTRAZENECA-2007UW03776

PATIENT
  Age: 14044 Day
  Sex: Male

DRUGS (8)
  1. SEROQUEL [Suspect]
     Indication: SCHIZOPHRENIA
     Dosage: 25 MG DISPENSED
     Route: 048
     Dates: start: 19981020
  2. SEROQUEL [Suspect]
     Route: 048
     Dates: start: 19981130
  3. SEROQUEL [Suspect]
     Dosage: 100 MG DISPENSED
     Route: 048
     Dates: start: 19991020
  4. SEROQUEL [Suspect]
     Dosage: 200 MG DISPENSED
     Route: 048
     Dates: start: 20040927
  5. SEROQUEL [Suspect]
     Dosage: 100 MG AT MORNING AND 200 MG AT NIGHT
     Route: 048
     Dates: start: 20041220
  6. SEROQUEL [Suspect]
     Route: 048
     Dates: start: 20060614
  7. DEPAKOTE [Concomitant]
     Dates: start: 19970602
  8. CELEXA [Concomitant]
     Dates: start: 19991020

REACTIONS (5)
  - DIABETES MELLITUS [None]
  - DIABETES MELLITUS INADEQUATE CONTROL [None]
  - DIABETIC NEUROPATHY [None]
  - HYPERGLYCAEMIA [None]
  - TYPE 1 DIABETES MELLITUS [None]
